FAERS Safety Report 20128054 (Version 1)
Quarter: 2021Q4

REPORT INFORMATION
  Report Type: Spontaneous
  Country: US (occurrence: None)
  Receive Date: 20211129
  Receipt Date: 20211129
  Transmission Date: 20220303
  Serious: No
  Sender: FDA-Public Use
  Company Number: US-ROCHE-2870739

PATIENT
  Sex: Female

DRUGS (2)
  1. HERCEPTIN [Suspect]
     Active Substance: TRASTUZUMAB
     Indication: Product used for unknown indication
     Route: 065
  2. KADCYLA [Suspect]
     Active Substance: ADO-TRASTUZUMAB EMTANSINE
     Indication: Product used for unknown indication
     Route: 065

REACTIONS (18)
  - Illness [Unknown]
  - Malaise [Unknown]
  - Gait disturbance [Unknown]
  - Arthralgia [Unknown]
  - Hypoaesthesia [Unknown]
  - Chromaturia [Unknown]
  - Nausea [Unknown]
  - Asthenia [Unknown]
  - Dizziness [Unknown]
  - Headache [Unknown]
  - White blood cell count decreased [Unknown]
  - Myalgia [Unknown]
  - Chills [Unknown]
  - Abdominal pain [Unknown]
  - Cough [Unknown]
  - Dry mouth [Unknown]
  - Insomnia [Unknown]
  - Rash [Unknown]
